FAERS Safety Report 9727598 (Version 1)
Quarter: 2013Q4

REPORT INFORMATION
  Report Type: Spontaneous
  Country: US (occurrence: US)
  Receive Date: 20131203
  Receipt Date: 20131203
  Transmission Date: 20140711
  Serious: No
  Sender: FDA-Public Use
  Company Number: US-B.I. PHARMACEUTICALS,INC./RIDGEFIELD-2013-BI-38397BP

PATIENT
  Sex: Male

DRUGS (1)
  1. MICARDIS HCT [Suspect]
     Indication: HYPERTENSION
     Dosage: STRENGTH: 40 MG / 12.5 MG; DAILY DOSE: 40 MG/ 12.5 MG
     Route: 048
     Dates: start: 2009

REACTIONS (2)
  - Fatigue [Recovered/Resolved]
  - Pollakiuria [Recovered/Resolved]
